FAERS Safety Report 5512275-6 (Version None)
Quarter: 2007Q4

REPORT INFORMATION
  Report Type: 
  Country: None (occurrence: None)
  Receive Date: 20071107
  Receipt Date: 20071029
  Transmission Date: 20080405
  Serious: Yes (Hospitalization)
  Sender: FDA-Public Use
  Company Number: CHPA2007CA11473

PATIENT
  Age: 61 Year
  Sex: Female
  Weight: 99.8 kg

DRUGS (1)
  1. MAALOX MULTI-ACTION (NCH) (BISMUTH SUBSALICYLATE) SUSPENSION [Suspect]
     Indication: DYSPEPSIA
     Dosage: 3 TSP PRN ORAL
     Route: 048
     Dates: start: 20070901, end: 20071020

REACTIONS (2)
  - FAECES DISCOLOURED [None]
  - POLYP [None]
